FAERS Safety Report 15990754 (Version 1)
Quarter: 2019Q1

REPORT INFORMATION
  Report Type: Spontaneous
  Country: US (occurrence: US)
  Receive Date: 20190221
  Receipt Date: 20190221
  Transmission Date: 20190418
  Serious: No
  Sender: FDA-Public Use
  Company Number: US-BAYER-2019-035494

PATIENT
  Sex: Male
  Weight: 88.44 kg

DRUGS (4)
  1. ALEVE [Suspect]
     Active Substance: NAPROXEN SODIUM
     Dosage: UNK
  2. ADVIL [IBUPROFEN] [Concomitant]
     Active Substance: IBUPROFEN
     Dosage: 200 MG
     Route: 048
  3. BAYER ASPIRIN [Concomitant]
     Active Substance: ASPIRIN
     Dosage: 325 MG
  4. TYLENOL [Suspect]
     Active Substance: ACETAMINOPHEN

REACTIONS (3)
  - Drug ineffective [None]
  - Arthralgia [None]
  - Headache [Not Recovered/Not Resolved]
